FAERS Safety Report 8477760-6 (Version None)
Quarter: 2012Q2

REPORT INFORMATION
  Report Type: 
  Country: None (occurrence: None)
  Receive Date: 20120629
  Receipt Date: 20110622
  Transmission Date: 20120825
  Serious: No
  Sender: FDA-Public Use
  Company Number: US-GLAXOSMITHKLINE-A0933587A

PATIENT
  Sex: Male

DRUGS (1)
  1. VENTOLIN [Suspect]
     Route: 065

REACTIONS (2)
  - DYSPNOEA [None]
  - DYSPHONIA [None]
